FAERS Safety Report 15211656 (Version 1)
Quarter: 2018Q3

REPORT INFORMATION
  Report Type: Spontaneous
  Country: ZA (occurrence: ZA)
  Receive Date: 20180729
  Receipt Date: 20180729
  Transmission Date: 20181010
  Serious: Yes (Other)
  Sender: FDA-Public Use
  Company Number: PHHY2018ZA046341

PATIENT
  Sex: Female

DRUGS (1)
  1. ACLASTA [Suspect]
     Active Substance: ZOLEDRONIC ACID
     Indication: OSTEOPOROSIS
     Dosage: Q12MO (5MG/100ML ANNUALLY)
     Route: 041
     Dates: start: 20180706

REACTIONS (4)
  - Cataract [Unknown]
  - Abnormal sensation in eye [Unknown]
  - Pain [Unknown]
  - Eye pain [Unknown]
